FAERS Safety Report 15084090 (Version 1)
Quarter: 2018Q2

REPORT INFORMATION
  Report Type: Spontaneous
  Country: US (occurrence: US)
  Receive Date: 20180608
  Receipt Date: 20180608
  Transmission Date: 20180711
  Serious: Yes (Other)
  Sender: FDA-Public Use
  Company Number: None

PATIENT
  Age: 28 Year
  Sex: Female
  Weight: 72 kg

DRUGS (1)
  1. NEXPLANON [Suspect]
     Active Substance: ETONOGESTREL
     Indication: CONTRACEPTION
     Dates: start: 20130605, end: 20180307

REACTIONS (11)
  - Pain [None]
  - Menorrhagia [None]
  - Migraine [None]
  - Hypersomnia [None]
  - Feeling abnormal [None]
  - Loss of personal independence in daily activities [None]
  - Nausea [None]
  - Asthenia [None]
  - Muscle spasms [None]
  - Expired device used [None]
  - Dizziness [None]

NARRATIVE: CASE EVENT DATE: 20150610
